FAERS Safety Report 7462387-5 (Version None)
Quarter: 2011Q2

REPORT INFORMATION
  Report Type: 
  Country: None (occurrence: None)
  Receive Date: 20110506
  Receipt Date: 20090219
  Transmission Date: 20111010
  Serious: Yes (Other)
  Sender: FDA-Public Use
  Company Number: US-BAYER-200827518NA

PATIENT
  Sex: Male
  Weight: 94.785 kg

DRUGS (40)
  1. GABAPENTIN [Concomitant]
  2. ALBUTEROL [Concomitant]
  3. TRENTAL [Concomitant]
  4. ADVAIR DISKUS 100/50 [Concomitant]
  5. BACTRIM DS [Concomitant]
  6. MAGNEVIST [Suspect]
     Indication: ANGIOGRAM
     Dosage: 40 ML, ONCE
     Route: 042
     Dates: start: 20061215, end: 20061215
  7. RENAGEL [Concomitant]
  8. FLONASE [Concomitant]
  9. NORVASC [Concomitant]
  10. DIGOXIN [Concomitant]
  11. MAGNEVIST [Suspect]
     Indication: NUCLEAR MAGNETIC RESONANCE IMAGING
     Dosage: 40 ML, ONCE
     Route: 042
     Dates: start: 20041029, end: 20041029
  12. TERAZOSIN HCL [Concomitant]
  13. DILTIAZEM [Concomitant]
  14. PROVENTIL [Concomitant]
  15. TRIAMCINOLONE [Concomitant]
  16. ATROVENT [Concomitant]
  17. CLONIDINE [Concomitant]
  18. CARDIZEM CD [Concomitant]
  19. LOVENOX [Concomitant]
  20. PENTOXIFYLLINE [Concomitant]
  21. COLCHICINE [Concomitant]
  22. GLIPIZIDE [Concomitant]
  23. ALLOPURINOL [Concomitant]
  24. OXYCODONE [Concomitant]
  25. PREDNISONE [Concomitant]
  26. GADOLINIUM IN UNSPECIFIED DRUG [Suspect]
     Indication: ANGIOGRAM
     Dosage: UNK UNK, ONCE
     Dates: start: 20010505, end: 20010505
  27. REGULAR INSULIN [Concomitant]
  28. MULTI-VITAMIN [Concomitant]
  29. WARFARIN [Concomitant]
  30. DIGOXIN [Concomitant]
  31. FLOVENT [Concomitant]
  32. ULTRAM [Concomitant]
  33. NEPHROCAPS [Concomitant]
  34. LEVOFLOXACIN [Concomitant]
  35. GADOLINIUM IN UNSPECIFIED DRUG [Suspect]
     Dosage: UNK, ONCE
     Route: 042
     Dates: start: 20050112, end: 20050112
  36. NPH INSULIN [Concomitant]
  37. LISINOPRIL [Concomitant]
  38. CARTIA XT [Concomitant]
  39. QUININE SULFATE [Concomitant]
  40. HYTRIN [Concomitant]

REACTIONS (20)
  - FALL [None]
  - FIBROSIS [None]
  - ANXIETY [None]
  - GENERAL PHYSICAL HEALTH DETERIORATION [None]
  - EMOTIONAL DISTRESS [None]
  - SKIN FIBROSIS [None]
  - MUSCLE CONTRACTURE [None]
  - PAIN [None]
  - ARTHRALGIA [None]
  - SKIN EXFOLIATION [None]
  - SCAR [None]
  - SKIN DISCOLOURATION [None]
  - INJURY [None]
  - SKIN HYPERTROPHY [None]
  - OEDEMA PERIPHERAL [None]
  - NEPHROGENIC SYSTEMIC FIBROSIS [None]
  - JOINT CONTRACTURE [None]
  - SKIN INDURATION [None]
  - SKIN PLAQUE [None]
  - SKIN TIGHTNESS [None]
